FAERS Safety Report 26043962 (Version 1)
Quarter: 2025Q4

REPORT INFORMATION
  Report Type: Spontaneous
  Country: CN (occurrence: CN)
  Receive Date: 20251114
  Receipt Date: 20251114
  Transmission Date: 20260119
  Serious: Yes (Hospitalization)
  Sender: ABBVIE
  Company Number: CN-PFIZER INC-PV202500130482

PATIENT
  Age: 87 Year
  Sex: Female
  Weight: 53 kg

DRUGS (2)
  1. AVIBACTAM SODIUM\CEFTAZIDIME [Suspect]
     Active Substance: AVIBACTAM SODIUM\CEFTAZIDIME
     Indication: Symptomatic treatment
     Dosage: 2.5 G, 2X/DAY, ?AVIBACTAM SODIUM: 0.5 G?CEFTAZIDIME PENTAHYDRATE: 2G
     Route: 041
     Dates: start: 20251004, end: 20251005
  2. AVIBACTAM SODIUM\CEFTAZIDIME [Suspect]
     Active Substance: AVIBACTAM SODIUM\CEFTAZIDIME
     Indication: Symptomatic treatment
     Dosage: 2.5 G, 3X/DAY, ?AVIBACTAM SODIUM: 0.5 G?CEFTAZIDIME PENTAHYDRATE: 2G
     Route: 041
     Dates: start: 20251001, end: 20251003

REACTIONS (5)
  - Oxygen saturation decreased [Recovering/Resolving]
  - Off label use [Unknown]
  - Muscle twitching [Recovered/Resolved]
  - Altered state of consciousness [Recovering/Resolving]
  - Tremor [Recovering/Resolving]

NARRATIVE: CASE EVENT DATE: 20251002
